FAERS Safety Report 16428152 (Version 1)
Quarter: 2019Q2

REPORT INFORMATION
  Report Type: Spontaneous
  Country: US (occurrence: US)
  Receive Date: 20190613
  Receipt Date: 20190613
  Transmission Date: 20190711
  Serious: No
  Sender: FDA-Public Use
  Company Number: US-SA-2019SA160889

PATIENT
  Age: 60 Year
  Sex: Female

DRUGS (2)
  1. NOVOLOG [Concomitant]
     Active Substance: INSULIN ASPART
  2. LANTUS [Suspect]
     Active Substance: INSULIN GLARGINE
     Indication: TYPE 1 DIABETES MELLITUS
     Dosage: 10 TO 12UNITS, TWICE AM AND PM
     Route: 065

REACTIONS (3)
  - Malaise [Unknown]
  - Blood glucose fluctuation [Unknown]
  - Feeling jittery [Unknown]
